FAERS Safety Report 4780924-6 (Version None)
Quarter: 2005Q3

REPORT INFORMATION
  Report Type: 
  Country: None (occurrence: None)
  Receive Date: 20050926
  Receipt Date: 20050913
  Transmission Date: 20060218
  Serious: Yes (Hospitalization, Other)
  Sender: FDA-Public Use
  Company Number: CHNY2005JP01155

PATIENT
  Age: 82 Year
  Sex: Male

DRUGS (1)
  1. NICOTINE [Suspect]
     Indication: SMOKING CESSATION THERAPY
     Dosage: 21 MG, QD; TRANSDERMAL
     Route: 062
     Dates: start: 20050603, end: 20050623

REACTIONS (3)
  - DEMENTIA [None]
  - HALLUCINATION [None]
  - TOBACCO WITHDRAWAL SYMPTOMS [None]
